FAERS Safety Report 9651228 (Version 1)
Quarter: 2013Q4

REPORT INFORMATION
  Report Type: Spontaneous
  Country: US (occurrence: US)
  Receive Date: 20131029
  Receipt Date: 20131029
  Transmission Date: 20140711
  Serious: No
  Sender: FDA-Public Use
  Company Number: US-BIOGENIDEC-2013BI070926

PATIENT
  Age: 52 Year
  Sex: Male

DRUGS (1)
  1. TECFIDERA [Suspect]
     Indication: MULTIPLE SCLEROSIS
     Route: 048
     Dates: start: 20130703

REACTIONS (4)
  - Musculoskeletal pain [Unknown]
  - Pollakiuria [Unknown]
  - Arthralgia [Unknown]
  - Abdominal pain upper [Unknown]
